FAERS Safety Report 17934415 (Version 22)
Quarter: 2025Q3

REPORT INFORMATION
  Report Type: Report from Study
  Country: US (occurrence: US)
  Receive Date: 20200624
  Receipt Date: 20250717
  Transmission Date: 20251021
  Serious: Yes (Hospitalization, Other)
  Sender: TAKEDA
  Company Number: US-KAMADA LIMITED-2020US003244

PATIENT
  Sex: Male
  Weight: 80.998 kg

DRUGS (36)
  1. GLASSIA [Suspect]
     Active Substance: .ALPHA.1-PROTEINASE INHIBITOR HUMAN
     Indication: Alpha-1 antitrypsin deficiency
     Dosage: 60 MILLIGRAM/KILOGRAM, 1/WEEK
     Dates: start: 20110920
  2. GLASSIA [Suspect]
     Active Substance: .ALPHA.1-PROTEINASE INHIBITOR HUMAN
     Dosage: UNK, 1/WEEK
  3. MELOXICAM [Concomitant]
     Active Substance: MELOXICAM
  4. AMLODIPINE BESYLATE [Concomitant]
     Active Substance: AMLODIPINE BESYLATE
  5. ACETAMINOPHEN\HYDROCODONE [Concomitant]
     Active Substance: ACETAMINOPHEN\HYDROCODONE
  6. VITAMIN D3 [Concomitant]
     Active Substance: CHOLECALCIFEROL
  7. LASIX [Concomitant]
     Active Substance: FUROSEMIDE
  8. LORAZEPAM [Concomitant]
     Active Substance: LORAZEPAM
  9. ATENOLOL [Concomitant]
     Active Substance: ATENOLOL
  10. ASPIRIN [Concomitant]
     Active Substance: ASPIRIN
  11. POTASSIUM CHLORIDE [Concomitant]
     Active Substance: POTASSIUM CHLORIDE
  12. HYDROCHLOROTHIAZIDE [Concomitant]
     Active Substance: HYDROCHLOROTHIAZIDE
  13. TRELEGY ELLIPTA [Concomitant]
     Active Substance: FLUTICASONE FUROATE\UMECLIDINIUM BROMIDE\VILANTEROL TRIFENATATE
  14. FLUTICASONE PROPIONATE [Concomitant]
     Active Substance: FLUTICASONE PROPIONATE
  15. OXYGEN [Concomitant]
     Active Substance: OXYGEN
  16. XOPENEX HFA [Concomitant]
     Active Substance: LEVALBUTEROL TARTRATE
  17. WELLBUTRIN XL [Concomitant]
     Active Substance: BUPROPION HYDROCHLORIDE
  18. CYCLOBENZAPRINE HYDROCHLORIDE [Concomitant]
     Active Substance: CYCLOBENZAPRINE HYDROCHLORIDE
  19. VITAMIN C [Concomitant]
     Active Substance: ASCORBIC ACID
  20. DIPHENHYDRAMINE [Concomitant]
     Active Substance: DIPHENHYDRAMINE
  21. SODIUM CHLORIDE [Concomitant]
     Active Substance: SODIUM CHLORIDE
  22. EPINEPHRINE [Concomitant]
     Active Substance: EPINEPHRINE
  23. Lmx [Concomitant]
  24. SPIRIVA [Concomitant]
     Active Substance: TIOTROPIUM BROMIDE MONOHYDRATE
  25. BUPROPION [Concomitant]
     Active Substance: BUPROPION
  26. PROAIR HFA [Concomitant]
     Active Substance: ALBUTEROL SULFATE
  27. AZITHROMYCIN [Concomitant]
     Active Substance: AZITHROMYCIN
  28. BUPROPION HYDROCHLORIDE [Concomitant]
     Active Substance: BUPROPION HYDROCHLORIDE
  29. NALOXONE HCL [Concomitant]
     Active Substance: NALOXONE HYDROCHLORIDE
  30. ONDANSETRON HYDROCHLORIDE [Concomitant]
     Active Substance: ONDANSETRON HYDROCHLORIDE
  31. VENLAFAXINE HCL [Concomitant]
     Active Substance: VENLAFAXINE HYDROCHLORIDE
  32. DULOXETINE HYDROCHLORIDE [Concomitant]
     Active Substance: DULOXETINE HYDROCHLORIDE
  33. DIPHENHYDRAMINE HYDROCHLORIDE [Concomitant]
     Active Substance: DIPHENHYDRAMINE HYDROCHLORIDE
  34. OMEPRAZOLE [Concomitant]
     Active Substance: OMEPRAZOLE
  35. LEVALBUTEROL TARTRATE [Concomitant]
     Active Substance: LEVALBUTEROL TARTRATE
  36. FERROUS SULFATE [Concomitant]
     Active Substance: FERROUS SULFATE

REACTIONS (21)
  - Diverticulitis [Unknown]
  - Fall [Unknown]
  - Hip fracture [Recovering/Resolving]
  - Pneumonia [Recovered/Resolved]
  - Acute respiratory failure [Recovered/Resolved]
  - Weight abnormal [Unknown]
  - Peripheral swelling [Unknown]
  - Chronic obstructive pulmonary disease [Unknown]
  - Intervertebral disc protrusion [Recovering/Resolving]
  - Product administration error [Not Recovered/Not Resolved]
  - Respiratory tract infection [Unknown]
  - Muscle strain [Recovering/Resolving]
  - Productive cough [Unknown]
  - Head injury [Unknown]
  - Skin abrasion [Unknown]
  - Sleep disorder [Unknown]
  - Nasal discomfort [Unknown]
  - Dyspnoea exertional [Not Recovered/Not Resolved]
  - Sinusitis [Unknown]
  - Oedema peripheral [Unknown]
  - Dyspnoea [Unknown]
